FAERS Safety Report 8198711-8 (Version None)
Quarter: 2012Q1

REPORT INFORMATION
  Report Type: 
  Country: None (occurrence: None)
  Receive Date: 20120309
  Receipt Date: 20120124
  Transmission Date: 20120608
  Serious: No
  Sender: FDA-Public Use
  Company Number: US-AMGEN-USASP2012004863

PATIENT
  Age: 52 Year
  Sex: Female

DRUGS (9)
  1. PROLIA [Suspect]
     Indication: OSTEOPOROSIS POSTMENOPAUSAL
     Dosage: 60 MG, Q6MO
     Dates: start: 20120123
  2. CALCIUM WITH VITAMIN D [Concomitant]
     Dosage: UNK
  3. CELEXA [Concomitant]
     Dosage: UNK
  4. ZITHROMAX [Concomitant]
     Dosage: UNK
     Dates: start: 20120124
  5. OMEPRAZOLE [Concomitant]
     Dosage: UNK
  6. BENZONATATE [Concomitant]
     Dosage: UNK
     Dates: start: 20120124
  7. CYCLOBENZAPRINE [Concomitant]
     Dosage: UNK
  8. FLONASE [Concomitant]
     Dosage: UNK
     Dates: start: 20120124
  9. TRAMADOL HCL [Concomitant]
     Dosage: 1 MG, Q8H
     Dates: start: 20120124

REACTIONS (5)
  - UPPER RESPIRATORY TRACT INFECTION [None]
  - PAIN [None]
  - BONE PAIN [None]
  - NAUSEA [None]
  - MYALGIA [None]
